FAERS Safety Report 18691287 (Version 1)
Quarter: 2021Q1

REPORT INFORMATION
  Report Type: Spontaneous
  Country: US (occurrence: US)
  Receive Date: 20210101
  Receipt Date: 20210101
  Transmission Date: 20210419
  Serious: No
  Sender: FDA-Public Use
  Company Number: US-TEVA-2020-US-1864732

PATIENT
  Age: 83 Year

DRUGS (3)
  1. WARFARIN TEVA [Suspect]
     Active Substance: WARFARIN SODIUM
     Indication: ATRIAL FIBRILLATION
     Route: 065
     Dates: start: 202009
  2. WARFARIN TEVA [Suspect]
     Active Substance: WARFARIN SODIUM
     Route: 065
     Dates: start: 202012
  3. WARFARIN TEVA [Suspect]
     Active Substance: WARFARIN SODIUM
     Indication: ANTIPHOSPHOLIPID ANTIBODIES
     Route: 065
     Dates: start: 202012

REACTIONS (4)
  - Product quality issue [Unknown]
  - International normalised ratio decreased [Recovered/Resolved]
  - Contusion [Recovered/Resolved]
  - Drug ineffective [Unknown]

NARRATIVE: CASE EVENT DATE: 202012
